FAERS Safety Report 17724702 (Version 2)
Quarter: 2020Q2

REPORT INFORMATION
  Report Type: Spontaneous
  Country: DE (occurrence: DE)
  Receive Date: 20200429
  Receipt Date: 20200628
  Transmission Date: 20200714
  Serious: Yes (Other)
  Sender: FDA-Public Use
  Company Number: NVSC2020DE114793

PATIENT
  Age: 4 Month
  Sex: Female

DRUGS (4)
  1. CYCLOSPORIN A [Suspect]
     Active Substance: CYCLOSPORINE
     Dosage: UNK (DOSE REDUCED TO 50 PERCENT)
     Route: 065
  2. PREDNISOLONE. [Suspect]
     Active Substance: PREDNISOLONE
     Indication: IMMUNOSUPPRESSION
     Dosage: UNK (GRADUALLY WITHDRAWN AND STOPPED 9 MONTHS AFTER TRANSPLANTATION)
     Route: 065
  3. CYCLOSPORIN A [Suspect]
     Active Substance: CYCLOSPORINE
     Indication: IMMUNOSUPPRESSION
     Dosage: UNK
     Route: 065
  4. EVEROLIMUS. [Suspect]
     Active Substance: EVEROLIMUS
     Indication: IMMUNOSUPPRESSION
     Dosage: UNK
     Route: 065

REACTIONS (3)
  - Polyomavirus viraemia [Unknown]
  - BK virus infection [Recovered/Resolved]
  - Viraemia [Recovered/Resolved]
